FAERS Safety Report 25985332 (Version 1)
Quarter: 2025Q4

REPORT INFORMATION
  Report Type: Spontaneous
  Country: US (occurrence: None)
  Receive Date: 20251031
  Receipt Date: 20251031
  Transmission Date: 20260118
  Serious: Yes (Death)
  Sender: FDA-CTU
  Company Number: None

PATIENT
  Age: 85 Year
  Sex: Male

DRUGS (11)
  1. DUPIXENT [Suspect]
     Active Substance: DUPILUMAB
     Indication: Chronic obstructive pulmonary disease
     Dosage: 300 MG/MG EVERY 14 DAYS SUBCUTANEOUS
     Route: 058
     Dates: start: 20250429
  2. TRELEGY ELLIPTA 200-62.5MG [Concomitant]
  3. CHOLECALCIFEROL [Concomitant]
     Active Substance: CHOLECALCIFEROL
  4. COMIRNATY 12+ VACCINE [Concomitant]
  5. FLUZONE HD 65+ VACCINE [Concomitant]
  6. LOSARTAN [Concomitant]
     Active Substance: LOSARTAN
  7. Acelylcystine 20% inh sol [Concomitant]
  8. FOLIC ACID [Concomitant]
     Active Substance: FOLIC ACID
  9. ferrous sulfate 325mg tab [Concomitant]
  10. omeprazole 20mg caps [Concomitant]
  11. MOXIFLOXACIN [Concomitant]
     Active Substance: MOXIFLOXACIN

REACTIONS (1)
  - Illness [None]

NARRATIVE: CASE EVENT DATE: 20251030
